FAERS Safety Report 7515006-3 (Version None)
Quarter: 2011Q2

REPORT INFORMATION
  Report Type: 
  Country: None (occurrence: None)
  Receive Date: 20110601
  Receipt Date: 20110518
  Transmission Date: 20111010
  Serious: Yes (Hospitalization, Other)
  Sender: FDA-Public Use
  Company Number: PHHY2011JP11807

PATIENT
  Sex: Female
  Weight: 60 kg

DRUGS (4)
  1. PRAVASTATIN [Concomitant]
     Dosage: 10 MG, UNK
     Route: 048
     Dates: start: 20041124
  2. VALSARTAN [Suspect]
     Indication: HYPERTENSION
     Dosage: 40 MG, QD
     Route: 048
     Dates: start: 20081211, end: 20090711
  3. LEVOTHYROXINE SODIUM [Concomitant]
     Dosage: 10 MG, UNK
     Route: 048
     Dates: start: 20041124
  4. SENNOSIDE [Concomitant]
     Dosage: UNK
     Dates: start: 20080821

REACTIONS (5)
  - HEMIPLEGIA [None]
  - DYSLALIA [None]
  - BLOOD PRESSURE DIASTOLIC DECREASED [None]
  - CEREBRAL INFARCTION [None]
  - ATRIAL FIBRILLATION [None]
